FAERS Safety Report 14211960 (Version 1)
Quarter: 2017Q4

REPORT INFORMATION
  Report Type: Spontaneous
  Country: US (occurrence: US)
  Receive Date: 20171121
  Receipt Date: 20171121
  Transmission Date: 20180321
  Serious: Yes (Death)
  Sender: FDA-Public Use
  Company Number: US-LEADIANT BIOSCIENCES INC-2017STPI000393

PATIENT
  Age: 28 Year
  Sex: Female

DRUGS (13)
  1. CYSTAGON [Concomitant]
     Active Substance: CYSTEAMINE BITARTRATE
  2. LETAIRIS [Concomitant]
     Active Substance: AMBRISENTAN
  3. ARANESP [Concomitant]
     Active Substance: DARBEPOETIN ALFA
  4. VENTOLIN [Concomitant]
     Active Substance: ALBUTEROL SULFATE
  5. ZYRTEC [Concomitant]
     Active Substance: CETIRIZINE HYDROCHLORIDE
  6. CYSTARAN [Suspect]
     Active Substance: CYSTEAMINE HYDROCHLORIDE
     Indication: CORNEAL DEPOSITS
     Dosage: 1 GTT, QH
     Route: 047
     Dates: start: 20140804
  7. MEDROXYPROGES LENS [Concomitant]
  8. DILAUDID [Concomitant]
     Active Substance: HYDROMORPHONE HYDROCHLORIDE
  9. SINGULAIR [Concomitant]
     Active Substance: MONTELUKAST SODIUM
  10. TUMS                               /00193601/ [Concomitant]
     Active Substance: CALCIUM CARBONATE\MAGNESIUM CARBONATE\MAGNESIUM TRISILICATE
  11. PROVERA [Concomitant]
     Active Substance: MEDROXYPROGESTERONE ACETATE
  12. SYNTHROID [Concomitant]
     Active Substance: LEVOTHYROXINE SODIUM
  13. CELEXA [Concomitant]
     Active Substance: CITALOPRAM HYDROBROMIDE

REACTIONS (1)
  - Cystinosis [Fatal]

NARRATIVE: CASE EVENT DATE: 20170512
